FAERS Safety Report 9112417 (Version 1)
Quarter: 2013Q1

REPORT INFORMATION
  Report Type: Spontaneous
  Country: US (occurrence: US)
  Receive Date: 20130219
  Receipt Date: 20130219
  Transmission Date: 20140127
  Serious: No
  Sender: FDA-Public Use
  Company Number: US-BRISTOL-MYERS SQUIBB COMPANY-17047325

PATIENT
  Age: 62 Year
  Sex: Female
  Weight: 77.1 kg

DRUGS (3)
  1. ORENCIA [Suspect]
     Indication: RHEUMATOID ARTHRITIS
     Dosage: LAST DOSE-03OCT12
     Route: 042
     Dates: start: 201209, end: 20121003
  2. CLONAZEPAM [Concomitant]
     Indication: GASTROINTESTINAL DISORDER
  3. ESTRADIOL [Concomitant]

REACTIONS (2)
  - Dyspnoea [Recovering/Resolving]
  - Feeling abnormal [Unknown]
